FAERS Safety Report 14413249 (Version 1)
Quarter: 2018Q1

REPORT INFORMATION
  Report Type: Spontaneous
  Country: US (occurrence: US)
  Receive Date: 20180119
  Receipt Date: 20180119
  Transmission Date: 20180509
  Serious: Yes (Hospitalization)
  Sender: FDA-Public Use
  Company Number: None

PATIENT
  Age: 60 Year
  Sex: Female
  Weight: 74.2 kg

DRUGS (26)
  1. ECOTRIN [Concomitant]
     Active Substance: ASPIRIN
  2. MYCOLOG [Concomitant]
     Active Substance: GRAMICIDIN\NEOMYCIN SULFATE\NYSTATIN\TRIAMCINOLONE ACETONIDE
  3. VICTOZA [Concomitant]
     Active Substance: LIRAGLUTIDE
  4. GLUCOPHAGE [Concomitant]
     Active Substance: METFORMIN HYDROCHLORIDE
  5. DEMADEX [Concomitant]
     Active Substance: TORSEMIDE
  6. PRINIVIL [Concomitant]
     Active Substance: LISINOPRIL
  7. ZOFRAN [Concomitant]
     Active Substance: ONDANSETRON HYDROCHLORIDE
  8. MIRAPEX [Concomitant]
     Active Substance: PRAMIPEXOLE DIHYDROCHLORIDE
  9. DURAGESIC [Suspect]
     Active Substance: FENTANYL
     Indication: PAIN
     Dosage: 50 MCG, Q72 HOURS, TRANSDERMAL
     Route: 062
  10. MONODOX [Concomitant]
     Active Substance: DOXYCYCLINE
  11. CYMBALTA [Concomitant]
     Active Substance: DULOXETINE HYDROCHLORIDE
  12. ROBAXIN [Concomitant]
     Active Substance: METHOCARBAMOL
  13. KLOR-CON [Concomitant]
     Active Substance: POTASSIUM CHLORIDE
  14. PRAVACHOL [Concomitant]
     Active Substance: PRAVASTATIN SODIUM
  15. HYDROMORPHONE [Suspect]
     Active Substance: HYDROMORPHONE
     Indication: PAIN
     Dosage: 4 MG, TID, PRN, PO
     Route: 048
  16. FLONASE [Concomitant]
     Active Substance: FLUTICASONE PROPIONATE
  17. ATIVAN [Concomitant]
     Active Substance: LORAZEPAM
  18. TESSALON [Concomitant]
     Active Substance: BENZONATATE
  19. COREG [Concomitant]
     Active Substance: CARVEDILOL
  20. XARELTO [Concomitant]
     Active Substance: RIVAROXABAN
  21. VENTOLIN [Concomitant]
     Active Substance: ALBUTEROL SULFATE
  22. TRICOR [Concomitant]
     Active Substance: FENOFIBRATE
  23. NEURONTIN [Concomitant]
     Active Substance: GABAPENTIN
  24. LANTUS [Concomitant]
     Active Substance: INSULIN GLARGINE
  25. LANTUS [Concomitant]
     Active Substance: INSULIN GLARGINE
  26. NTG [Concomitant]
     Active Substance: NITROGLYCERIN

REACTIONS (4)
  - Accidental overdose [None]
  - Snoring [None]
  - Wrong technique in product usage process [None]
  - Oxygen saturation decreased [None]

NARRATIVE: CASE EVENT DATE: 20170825
